FAERS Safety Report 10444981 (Version 1)
Quarter: 2014Q3

REPORT INFORMATION
  Report Type: Spontaneous
  Country: US (occurrence: US)
  Receive Date: 20140910
  Receipt Date: 20140910
  Transmission Date: 20150326
  Serious: No
  Sender: FDA-Public Use
  Company Number: US-PFIZER INC-2014250830

PATIENT
  Age: 85 Year
  Sex: Male

DRUGS (1)
  1. TRIAZOLAM. [Suspect]
     Active Substance: TRIAZOLAM
     Dosage: 0.25 MG, UNK
     Dates: start: 2014, end: 201409

REACTIONS (2)
  - Malaise [Unknown]
  - Nightmare [Unknown]

NARRATIVE: CASE EVENT DATE: 201409
